FAERS Safety Report 5904323-6 (Version None)
Quarter: 2008Q4

REPORT INFORMATION
  Report Type: 
  Country: None (occurrence: None)
  Receive Date: 20081001
  Receipt Date: 20080922
  Transmission Date: 20090506
  Serious: Yes (Hospitalization)
  Sender: FDA-Public Use
  Company Number: CA-JNJFOC-20080703384

PATIENT
  Sex: Female
  Weight: 49.9 kg

DRUGS (4)
  1. REMICADE [Suspect]
     Dosage: 2ND INFUSION ON AN UNSPECIFIED DATE
     Route: 042
  2. REMICADE [Suspect]
     Indication: RHEUMATOID ARTHRITIS
     Dosage: 2ND INFUSION
     Route: 042
  3. LEFLUNOMIDE [Concomitant]
     Route: 048
  4. METHOTREXATE [Concomitant]
     Route: 058

REACTIONS (2)
  - LUNG DISORDER [None]
  - LUNG INFILTRATION [None]
